FAERS Safety Report 5046619-9 (Version None)
Quarter: 2006Q2

REPORT INFORMATION
  Report Type: 
  Country: None (occurrence: None)
  Receive Date: 20060630
  Receipt Date: 20060620
  Transmission Date: 20061013
  Serious: Yes (Death, Other)
  Sender: FDA-Public Use
  Company Number: 200612593GDS

PATIENT
  Age: 83 Year
  Sex: Female

DRUGS (4)
  1. PROFLOX (MOXIFLOXACIN) [Suspect]
     Indication: BRONCHIOLITIS
     Dosage: 400 MG, TOTAL DAILY, ORAL
     Route: 048
     Dates: start: 20050901, end: 20050930
  2. PROFLOX (MOXIFLOXACIN) [Suspect]
     Indication: BRONCHITIS ACUTE
     Dosage: 400 MG, TOTAL DAILY, ORAL
     Route: 048
     Dates: start: 20050901, end: 20050930
  3. ALLOPURINOL [Concomitant]
  4. ISODIUR [Concomitant]

REACTIONS (4)
  - HAEMODIALYSIS [None]
  - HYPERKALAEMIA [None]
  - PNEUMONIA [None]
  - RENAL FAILURE ACUTE [None]
